FAERS Safety Report 7048990-5 (Version None)
Quarter: 2010Q4

REPORT INFORMATION
  Report Type: 
  Country: None (occurrence: None)
  Receive Date: 20101018
  Receipt Date: 20101011
  Transmission Date: 20110411
  Serious: Yes (Death, Hospitalization, Other)
  Sender: FDA-Public Use
  Company Number: PHHY2010US61780

PATIENT
  Sex: Female
  Weight: 102.7 kg

DRUGS (9)
  1. EXJADE [Suspect]
     Indication: BLOOD DISORDER
     Dosage: 750 MG, TID
     Route: 048
  2. METFORMIN [Concomitant]
     Dosage: 500 MG, BID
     Route: 048
  3. LEVOTHYROXINE [Concomitant]
     Dosage: 75 UG, DAILY
     Route: 048
  4. AUGMENTIN '125' [Concomitant]
     Dosage: 875 MG, BID
     Route: 048
  5. ALLOPURINOL [Concomitant]
     Dosage: 300 MG, DAILY
  6. PREDNISONE [Concomitant]
     Dosage: 20 MG, DAILY
  7. GEODON [Concomitant]
     Dosage: 40 MG, BID
     Route: 048
  8. EFFEXOR XR [Concomitant]
     Dosage: 75 MG, DAILY
     Route: 048
  9. REVLIMID [Concomitant]

REACTIONS (31)
  - ACUTE MYELOID LEUKAEMIA [None]
  - ANAEMIA [None]
  - ASTHENIA [None]
  - BREATH ODOUR [None]
  - CONJUNCTIVAL HAEMORRHAGE [None]
  - CONJUNCTIVAL PALLOR [None]
  - DEATH [None]
  - DECREASED ACTIVITY [None]
  - DYSPNOEA [None]
  - EPISTAXIS [None]
  - EYE MOVEMENT DISORDER [None]
  - FATIGUE [None]
  - GASTROINTESTINAL HAEMORRHAGE [None]
  - GASTROINTESTINAL SOUNDS ABNORMAL [None]
  - HYPOACUSIS [None]
  - IMMUNOSUPPRESSION [None]
  - MALAISE [None]
  - MYELOFIBROSIS [None]
  - NEURODERMATITIS [None]
  - OEDEMA [None]
  - PANCYTOPENIA [None]
  - PERIORBITAL CELLULITIS [None]
  - PETECHIAE [None]
  - RECTAL HAEMORRHAGE [None]
  - SKIN ULCER [None]
  - SPLENOMEGALY [None]
  - THROMBOCYTOPENIA [None]
  - TONGUE ULCERATION [None]
  - TOOTH DISORDER [None]
  - VAGINAL HAEMORRHAGE [None]
  - WEIGHT DECREASED [None]
